FAERS Safety Report 4678491-0 (Version None)
Quarter: 2005Q2

REPORT INFORMATION
  Report Type: 
  Country: None (occurrence: None)
  Receive Date: 20050601
  Receipt Date: 20050523
  Transmission Date: 20051028
  Serious: Yes (Other)
  Sender: FDA-Public Use
  Company Number: US-ROCHE-405702

PATIENT
  Age: 16 Year

DRUGS (1)
  1. ACCUTANE [Suspect]
     Indication: DRUG USE FOR UNKNOWN INDICATION
     Route: 048
     Dates: start: 20021015

REACTIONS (4)
  - DEPRESSION [None]
  - IMPULSIVE BEHAVIOUR [None]
  - INTENTIONAL MISUSE [None]
  - SUICIDE ATTEMPT [None]
